FAERS Safety Report 5622599-X (Version None)
Quarter: 2008Q1

REPORT INFORMATION
  Report Type: 
  Country: None (occurrence: None)
  Receive Date: 20080211
  Receipt Date: 20080211
  Transmission Date: 20080703
  Serious: Yes (Hospitalization)
  Sender: FDA-Public Use
  Company Number: None

PATIENT
  Sex: Female
  Weight: 67.1324 kg

DRUGS (1)
  1. IC DESMOPRESSIN [Suspect]
     Dosage: 0.2 MGAPO 1 AT BEDTIME MOUTH
     Route: 048
     Dates: start: 20071005, end: 20071009

REACTIONS (1)
  - BLOOD SODIUM DECREASED [None]
